FAERS Safety Report 4458025-6 (Version None)
Quarter: 2004Q3

REPORT INFORMATION
  Report Type: 
  Country: None (occurrence: None)
  Receive Date: 20040922
  Receipt Date: 20040907
  Transmission Date: 20050211
  Serious: Yes (Other)
  Sender: FDA-Public Use
  Company Number: GBS040615166

PATIENT
  Age: 60 Year
  Sex: Female
  Weight: 55 kg

DRUGS (3)
  1. VANCOCIN HCL [Suspect]
     Indication: BRONCHITIS ACUTE
     Dosage: 125 MG/4 DAY
     Dates: start: 20040618, end: 20040625
  2. IBUPROFEN [Concomitant]
  3. DEQUADIN (DEQUALINIUM CHLORIDE) [Concomitant]

REACTIONS (8)
  - CHILLS [None]
  - FEELING ABNORMAL [None]
  - FEELING COLD [None]
  - FEELING HOT [None]
  - HYPERSENSITIVITY [None]
  - RASH MACULAR [None]
  - REACTION TO COLOURING [None]
  - TREMOR [None]
